FAERS Safety Report 18998788 (Version 1)
Quarter: 2021Q1

REPORT INFORMATION
  Report Type: Report from Study
  Country: US (occurrence: US)
  Receive Date: 20210311
  Receipt Date: 20210311
  Transmission Date: 20210420
  Serious: Yes (Hospitalization)
  Sender: FDA-Public Use
  Company Number: US-JNJFOC-20210107915

PATIENT
  Age: 84 Year
  Sex: Female
  Weight: 73.55 kg

DRUGS (3)
  1. TYVASO [Concomitant]
     Active Substance: TREPROSTINIL
  2. MACITENTAN [Suspect]
     Active Substance: MACITENTAN
     Indication: PULMONARY ARTERIAL HYPERTENSION
     Route: 048
  3. MACITENTAN [Suspect]
     Active Substance: MACITENTAN
     Route: 048

REACTIONS (2)
  - Abdominal pain upper [Unknown]
  - Gastric disorder [Unknown]

NARRATIVE: CASE EVENT DATE: 20201231
